FAERS Safety Report 19860941 (Version 2)
Quarter: 2022Q2

REPORT INFORMATION
  Report Type: Spontaneous
  Country: US (occurrence: US)
  Receive Date: 20210921
  Receipt Date: 20220422
  Transmission Date: 20220721
  Serious: No
  Sender: FDA-Public Use
  Company Number: US-GSKCCFUS-CASE-01163944_AE-68318

PATIENT
  Sex: Male

DRUGS (1)
  1. WELLBUTRIN SR [Suspect]
     Active Substance: BUPROPION HYDROCHLORIDE
     Indication: Product used for unknown indication
     Dosage: 150 MG
     Route: 048
     Dates: end: 2014

REACTIONS (4)
  - Alopecia [Not Recovered/Not Resolved]
  - Bruxism [Not Recovered/Not Resolved]
  - Hirsutism [Not Recovered/Not Resolved]
  - Hair colour changes [Not Recovered/Not Resolved]
